FAERS Safety Report 6570283-0 (Version None)
Quarter: 2010Q1

REPORT INFORMATION
  Report Type: 
  Country: None (occurrence: None)
  Receive Date: 20100204
  Receipt Date: 20100125
  Transmission Date: 20100710
  Serious: Yes (Hospitalization)
  Sender: FDA-Public Use
  Company Number: FR-PFIZER INC-2010010365

PATIENT
  Age: 56 Year
  Sex: Male

DRUGS (20)
  1. ZYVOXID [Suspect]
     Indication: PROPHYLAXIS
     Dosage: 3 DF PER DAY
     Route: 048
     Dates: start: 20080714
  2. ROCEPHIN [Suspect]
     Dosage: 2 DF PER DAY
     Route: 042
     Dates: start: 20080629, end: 20080702
  3. IZILOX [Suspect]
     Dosage: 1 DF PER DAY
     Route: 042
     Dates: start: 20080629, end: 20080702
  4. ZECLAR [Suspect]
     Indication: PNEUMONIA LEGIONELLA
     Dosage: 2 DF PER DAY
     Route: 042
     Dates: start: 20080629, end: 20080714
  5. PARACETAMOL [Suspect]
     Dosage: 4 DF PER DAY
     Route: 042
     Dates: start: 20080629, end: 20080717
  6. CIPROFLOXACIN HCL [Suspect]
     Dosage: 3 DF PER DAY
     Route: 042
     Dates: start: 20080702, end: 20080704
  7. TAVANIC [Suspect]
     Indication: PNEUMONIA LEGIONELLA
     Dosage: 2 DF PER DAY
     Route: 042
     Dates: start: 20080703
  8. LOVENOX [Suspect]
     Dosage: 1 DF PER DAY
     Route: 058
     Dates: start: 20080705
  9. TAZOCILLINE [Suspect]
     Dosage: UNK
     Route: 042
     Dates: start: 20080707, end: 20080711
  10. AERIUS [Suspect]
     Dosage: 1 DF PER DAY
     Route: 048
     Dates: start: 20080709
  11. VENOFER [Suspect]
     Dosage: 3 DF PER DAY
     Route: 048
     Dates: start: 20080711
  12. NUTRIFLEX ^BRAUN^ [Suspect]
  13. OMEPRAZOLE [Suspect]
     Dosage: 1 DF PER DAY
     Route: 048
     Dates: start: 20080717
  14. TIENAM [Suspect]
     Indication: PROPHYLAXIS
     Dosage: 3 DF PER DAY
     Route: 048
     Dates: start: 20080718
  15. DOLIPRANE [Suspect]
     Dosage: 4 DF PER DAY
     Route: 048
     Dates: start: 20080718
  16. SOLU-MEDROL [Concomitant]
     Dosage: UNK
     Route: 048
     Dates: start: 20080720
  17. TRIFLUCAN [Concomitant]
     Dosage: UNK
     Route: 048
     Dates: start: 20080725
  18. INNOHEP [Concomitant]
     Dosage: UNK
     Route: 042
     Dates: start: 20080629, end: 20080704
  19. SUCRALFATE [Concomitant]
     Dosage: UNK
     Route: 048
     Dates: start: 20080630, end: 20080716
  20. ATARAX [Concomitant]
     Dosage: UNK
     Route: 048
     Dates: start: 20080725

REACTIONS (1)
  - CYTOLYTIC HEPATITIS [None]
